FAERS Safety Report 6358692-6 (Version None)
Quarter: 2009Q3

REPORT INFORMATION
  Report Type: 
  Country: None (occurrence: None)
  Receive Date: 20090916
  Receipt Date: 20090624
  Transmission Date: 20100115
  Serious: No
  Sender: FDA-Public Use
  Company Number: US-ABBOTT-09P-163-0581979-00

PATIENT
  Sex: Female
  Weight: 81.72 kg

DRUGS (6)
  1. TRILIPIX [Suspect]
     Indication: HIGH DENSITY LIPOPROTEIN INCREASED
     Dates: start: 20081201
  2. TRILIPIX [Suspect]
     Indication: LOW DENSITY LIPOPROTEIN DECREASED
  3. CRESTOR [Concomitant]
     Indication: BLOOD CHOLESTEROL
     Dates: start: 20080101, end: 20090101
  4. CRESTOR [Concomitant]
     Route: 048
     Dates: start: 20081201, end: 20090301
  5. LOW-OGESTREL-21 [Concomitant]
     Indication: CONTRACEPTION
  6. ASPIRIN [Concomitant]
     Indication: DRUG USE FOR UNKNOWN INDICATION

REACTIONS (2)
  - ANXIETY [None]
  - NERVOUSNESS [None]
